FAERS Safety Report 9410205 (Version 1)
Quarter: 2013Q2

REPORT INFORMATION
  Report Type: Spontaneous
  Country: US (occurrence: None)
  Receive Date: 20130405
  Receipt Date: 20130405
  Transmission Date: 20140414
  Serious: Yes (Hospitalization)
  Sender: FDA-Public Use
  Company Number: US-DEXPHARM-20130060

PATIENT
  Age: 71 Year
  Sex: Female
  Weight: 83.45 kg

DRUGS (5)
  1. OMEPRAZOLE [Suspect]
     Indication: HYPERCHLORHYDRIA
     Dosage: 20 MG ONCE A DAY, ORAL
     Route: 048
     Dates: end: 20130130
  2. OMEPRAZOLE [Suspect]
     Indication: HYPERCHLORHYDRIA
     Route: 048
     Dates: start: 20130131
  3. WARFARIN [Suspect]
     Dates: start: 2012
  4. WARFARIN [Suspect]
     Dates: start: 2012
  5. CYMBALTA 30 MG [Concomitant]

REACTIONS (5)
  - Rectal haemorrhage [None]
  - Gastric polyps [None]
  - Dizziness [None]
  - Heart rate increased [None]
  - Tachycardia [None]
